FAERS Safety Report 15785344 (Version 1)
Quarter: 2019Q1

REPORT INFORMATION
  Report Type: Spontaneous
  Country: US (occurrence: US)
  Receive Date: 20190102
  Receipt Date: 20190102
  Transmission Date: 20190417
  Serious: Yes (Hospitalization)
  Sender: FDA-Public Use
  Company Number: None

PATIENT
  Age: 76 Year
  Sex: Female
  Weight: 72 kg

DRUGS (11)
  1. TRAZEDONE [Concomitant]
  2. ABILIFY [Concomitant]
     Active Substance: ARIPIPRAZOLE
  3. BABY ASPIRIN [Concomitant]
     Active Substance: ASPIRIN
  4. NEURONTIN [Concomitant]
     Active Substance: GABAPENTIN
  5. VITAMIN B [Concomitant]
     Active Substance: VITAMIN B
  6. OMNIPAQUE [Suspect]
     Active Substance: IOHEXOL
  7. MYERBICTRIQ [Concomitant]
  8. COQ10 [Concomitant]
     Active Substance: UBIDECARENONE
  9. PRISTIQ EXTENDED-RELEASE [Concomitant]
     Active Substance: DESVENLAFAXINE SUCCINATE
  10. BLOOD PRESSURE MEDICATION [Concomitant]
     Active Substance: UNSPECIFIED INGREDIENT
  11. GABAPANTIN [Concomitant]

REACTIONS (1)
  - Cardiac arrest [None]

NARRATIVE: CASE EVENT DATE: 20170316
